FAERS Safety Report 13413622 (Version 5)
Quarter: 2023Q4

REPORT INFORMATION
  Report Type: Spontaneous
  Country: US (occurrence: US)
  Receive Date: 20170406
  Receipt Date: 20231106
  Transmission Date: 20240110
  Serious: No
  Sender: FDA-Public Use
  Company Number: US-JNJFOC-20170317725

PATIENT
  Age: 26 Year
  Sex: Male

DRUGS (20)
  1. RISPERDAL [Suspect]
     Active Substance: RISPERIDONE
     Indication: Schizophrenia
     Route: 048
     Dates: start: 20090305, end: 20090406
  2. RISPERDAL [Suspect]
     Active Substance: RISPERIDONE
     Indication: Psychotic disorder
     Route: 048
     Dates: start: 20091226, end: 20101012
  3. RISPERDAL [Suspect]
     Active Substance: RISPERIDONE
     Route: 048
     Dates: start: 20100109, end: 20100922
  4. RISPERDAL [Suspect]
     Active Substance: RISPERIDONE
     Route: 048
     Dates: start: 20110722, end: 20141002
  5. RISPERDAL [Suspect]
     Active Substance: RISPERIDONE
     Route: 048
     Dates: start: 20130617, end: 20140922
  6. RISPERDAL [Suspect]
     Active Substance: RISPERIDONE
     Route: 048
     Dates: end: 20141002
  7. RISPERDAL [Suspect]
     Active Substance: RISPERIDONE
     Route: 048
  8. RISPERIDONE [Suspect]
     Active Substance: RISPERIDONE
     Indication: Schizophrenia
     Route: 048
     Dates: start: 20090305, end: 20090406
  9. RISPERIDONE [Suspect]
     Active Substance: RISPERIDONE
     Route: 048
     Dates: start: 20091226, end: 20101012
  10. RISPERIDONE [Suspect]
     Active Substance: RISPERIDONE
     Dosage: VARYING DOSES OF 2 MG, 3MG, 4 MG
     Route: 048
     Dates: start: 20091231, end: 20140922
  11. RISPERIDONE [Suspect]
     Active Substance: RISPERIDONE
     Route: 048
  12. RISPERDAL M-TAB [Suspect]
     Active Substance: RISPERIDONE
     Indication: Schizophrenia
     Route: 048
  13. RISPERDAL M-TAB [Suspect]
     Active Substance: RISPERIDONE
     Indication: Mixed delusion
     Dosage: VARYING DOSES ON 3MG, 4 MG
     Route: 048
     Dates: start: 20100507, end: 20130814
  14. RISPERDAL M-TAB [Suspect]
     Active Substance: RISPERIDONE
     Route: 048
  15. INVEGA [Suspect]
     Active Substance: PALIPERIDONE
     Indication: Schizophrenia
     Route: 048
     Dates: start: 20090406, end: 20090807
  16. INVEGA [Suspect]
     Active Substance: PALIPERIDONE
     Route: 048
     Dates: start: 20140909, end: 20141007
  17. INVEGA [Suspect]
     Active Substance: PALIPERIDONE
     Route: 048
  18. INVEGA SUSTENNA [Suspect]
     Active Substance: PALIPERIDONE PALMITATE
     Indication: Schizophrenia
     Dosage: VARYING DOSES OF 156 MG, 234 MG,
     Route: 030
     Dates: start: 20101221, end: 20140916
  19. INVEGA SUSTENNA [Suspect]
     Active Substance: PALIPERIDONE PALMITATE
     Route: 030
  20. INVEGA SUSTENNA [Suspect]
     Active Substance: PALIPERIDONE PALMITATE

REACTIONS (2)
  - Emotional distress [Unknown]
  - Gynaecomastia [Unknown]

NARRATIVE: CASE EVENT DATE: 20150511
